FAERS Safety Report 9462623 (Version 2)
Quarter: 2013Q3

REPORT INFORMATION
  Report Type: Report from Study
  Country: FR (occurrence: FR)
  Receive Date: 20130816
  Receipt Date: 20130826
  Transmission Date: 20140515
  Serious: Yes (Death, Hospitalization)
  Sender: FDA-Public Use
  Company Number: FR-BAYER-2013-098186

PATIENT
  Age: 71 Year
  Sex: Female

DRUGS (2)
  1. REGORAFENIB [Suspect]
     Indication: COLORECTAL CANCER METASTATIC
     Dosage: 160 MG, QD
     Dates: start: 20130401, end: 20130416
  2. REGORAFENIB [Suspect]
     Indication: COLORECTAL CANCER METASTATIC
     Dosage: 120 MG, QD
     Dates: start: 20130508

REACTIONS (13)
  - Palmar-plantar erythrodysaesthesia syndrome [Recovered/Resolved with Sequelae]
  - Mucosal inflammation [Recovered/Resolved with Sequelae]
  - Dehydration [Recovered/Resolved with Sequelae]
  - Colorectal cancer metastatic [Fatal]
  - General physical health deterioration [Fatal]
  - Weight decreased [Fatal]
  - Eczema [Recovered/Resolved with Sequelae]
  - Nausea [None]
  - Chest pain [None]
  - Burning sensation [Recovered/Resolved with Sequelae]
  - Burning sensation [Recovered/Resolved with Sequelae]
  - Plantar erythema [Recovered/Resolved with Sequelae]
  - Palmar erythema [Recovered/Resolved with Sequelae]
